FAERS Safety Report 9050709 (Version 3)
Quarter: 2013Q2

REPORT INFORMATION
  Report Type: Spontaneous
  Country: US (occurrence: US)
  Receive Date: 20130205
  Receipt Date: 20130621
  Transmission Date: 20140414
  Serious: No
  Sender: FDA-Public Use
  Company Number: US-009507513-1301USA012356

PATIENT
  Age: 58 Year
  Sex: Male
  Weight: 82.86 kg

DRUGS (1)
  1. ZOCOR [Suspect]
     Indication: HYPERTRIGLYCERIDAEMIA
     Dosage: 20 MG, QD
     Route: 048
     Dates: start: 20110406, end: 20110408

REACTIONS (7)
  - Micturition disorder [Recovered/Resolved]
  - Drug hypersensitivity [Unknown]
  - Depression [Unknown]
  - Pain [Unknown]
  - Chronic sinusitis [Unknown]
  - Pyrexia [Recovered/Resolved]
  - Pain [Unknown]
